FAERS Safety Report 7787135-0 (Version None)
Quarter: 2011Q3

REPORT INFORMATION
  Report Type: 
  Country: None (occurrence: None)
  Receive Date: 20110929
  Receipt Date: 20110926
  Transmission Date: 20111222
  Serious: Yes (Other)
  Sender: FDA-Public Use
  Company Number: US-VERTEX PHARMACEUTICALS INC.-AE-2011-001346

PATIENT
  Sex: Female
  Weight: 83.99 kg

DRUGS (5)
  1. INCIVEK [Suspect]
  2. RIBAVIRIN [Concomitant]
     Indication: HEPATITIS C
     Dates: start: 20110722
  3. INCIVEK [Suspect]
     Indication: HEPATITIS C
     Dates: start: 20110722
  4. INCIVEK [Suspect]
  5. PEGASYS [Concomitant]
     Indication: HEPATITIS C
     Dates: start: 20110722

REACTIONS (9)
  - PRODUCTIVE COUGH [None]
  - HAEMORRHOIDS [None]
  - HEPATITIS C RNA INCREASED [None]
  - HAEMATOCHEZIA [None]
  - PANCYTOPENIA [None]
  - DYSGEUSIA [None]
  - FATIGUE [None]
  - DIARRHOEA [None]
  - ANAL PRURITUS [None]
